FAERS Safety Report 18127521 (Version 1)
Quarter: 2020Q3

REPORT INFORMATION
  Report Type: Spontaneous
  Country: US (occurrence: US)
  Receive Date: 20200810
  Receipt Date: 20200810
  Transmission Date: 20201103
  Serious: No
  Sender: FDA-Public Use
  Company Number: US-AMGEN-USASP2020123074

PATIENT
  Age: 81 Year
  Sex: Female

DRUGS (7)
  1. AMLODIPINE [Concomitant]
     Active Substance: AMLODIPINE BESYLATE
     Indication: BLOOD PRESSURE SYSTOLIC INCREASED
     Dosage: 5 MILLIGRAM, BID
  2. COREG [Concomitant]
     Active Substance: CARVEDILOL
     Dosage: 5 MILLIGRAM, BID
  3. ZETIA [Concomitant]
     Active Substance: EZETIMIBE
  4. REPATHA [Suspect]
     Active Substance: EVOLOCUMAB
     Indication: ARTERIAL OCCLUSIVE DISEASE
     Dosage: 140 MILLIGRAM, Q2WK
     Route: 065
     Dates: start: 20200617
  5. REPATHA [Suspect]
     Active Substance: EVOLOCUMAB
     Indication: HYPERCHOLESTEROLAEMIA
  6. PLAVIX [Concomitant]
     Active Substance: CLOPIDOGREL BISULFATE
  7. ASPIRIN [ACETYLSALICYLIC ACID] [Concomitant]
     Active Substance: ASPIRIN

REACTIONS (6)
  - Mobility decreased [Unknown]
  - Dyspnoea [Unknown]
  - Lymph node pain [Unknown]
  - Chest pain [Unknown]
  - Neck pain [Unknown]
  - Joint noise [Unknown]

NARRATIVE: CASE EVENT DATE: 2020
